FAERS Safety Report 16290379 (Version 1)
Quarter: 2019Q2

REPORT INFORMATION
  Report Type: Spontaneous
  Country: US (occurrence: US)
  Receive Date: 20190508
  Receipt Date: 20190508
  Transmission Date: 20190711
  Serious: Yes (Other)
  Sender: FDA-Public Use
  Company Number: None

PATIENT
  Age: 54 Year
  Weight: 65.25 kg

DRUGS (2)
  1. AJOVY [Suspect]
     Active Substance: FREMANEZUMAB-VFRM
     Indication: DRUG ERUPTION
     Dosage: ?          OTHER FREQUENCY:QUARTERLY;?
     Route: 058
     Dates: start: 20190131, end: 20190202
  2. AJOVY [Suspect]
     Active Substance: FREMANEZUMAB-VFRM
     Indication: DRUG HYPERSENSITIVITY
     Dosage: ?          OTHER FREQUENCY:QUARTERLY;?
     Route: 058
     Dates: start: 20190131, end: 20190202

REACTIONS (2)
  - Drug hypersensitivity [None]
  - Rash [None]

NARRATIVE: CASE EVENT DATE: 20190201
